FAERS Safety Report 4598017-X (Version None)
Quarter: 2005Q2

REPORT INFORMATION
  Report Type: 
  Country: None (occurrence: None)
  Receive Date: 20050204
  Receipt Date: 20041213
  Transmission Date: 20051028
  Serious: Yes (Hospitalization)
  Sender: FDA-Public Use
  Company Number: PHEH2004US09241

PATIENT
  Age: 20 Year
  Sex: Male

DRUGS (5)
  1. CLOZARIL [Suspect]
     Indication: SCHIZOAFFECTIVE DISORDER
     Dosage: 125 MG, QD, ORAL
     Route: 048
     Dates: start: 20040802
  2. RISPERDAL [Concomitant]
  3. GEODON [Concomitant]
  4. GABITRIL [Concomitant]
  5. DEPAKOTE [Concomitant]

REACTIONS (4)
  - ARTHRALGIA [None]
  - MUSCLE RIGIDITY [None]
  - NEUROLEPTIC MALIGNANT SYNDROME [None]
  - PYREXIA [None]
